FAERS Safety Report 8811155 (Version 2)
Quarter: 2012Q4

REPORT INFORMATION
  Report Type: 
  Country: ZA (occurrence: ZA)
  Receive Date: 20120927
  Receipt Date: 20121005
  Transmission Date: 20130627
  Serious: Yes (Hospitalization, Other)
  Sender: FDA-Public Use
  Company Number: PHHY2012ZA083753

PATIENT
  Age: 77 None
  Sex: Female

DRUGS (2)
  1. ACLASTA [Suspect]
     Dosage: 5mg/100 ml
     Route: 042
     Dates: start: 2010
  2. ACLASTA [Suspect]
     Dosage: 5mg/100 ml
     Route: 042
     Dates: start: 201104

REACTIONS (16)
  - Fall [Unknown]
  - Pelvic fracture [Unknown]
  - Pain [Unknown]
  - Back pain [Unknown]
  - Small intestinal obstruction [Unknown]
  - Neglect of personal appearance [Unknown]
  - Malaise [Unknown]
  - Sciatica [Unknown]
  - Tendon rupture [Unknown]
  - Foot fracture [Unknown]
  - Radius fracture [Unknown]
  - Bone disorder [Unknown]
  - Multiple fractures [Unknown]
  - Osteopenia [Unknown]
  - Abasia [Unknown]
  - Poor venous access [Unknown]
